FAERS Safety Report 6959016-3 (Version None)
Quarter: 2010Q3

REPORT INFORMATION
  Report Type: 
  Country: None (occurrence: None)
  Receive Date: 20100831
  Receipt Date: 20100824
  Transmission Date: 20110219
  Serious: No
  Sender: FDA-Public Use
  Company Number: US-US-EMD SERONO, INC.-7015623

PATIENT
  Sex: Female
  Weight: 104 kg

DRUGS (6)
  1. REBIF [Suspect]
     Indication: MULTIPLE SCLEROSIS
     Route: 058
     Dates: start: 20090825
  2. AMPYRA [Concomitant]
     Indication: MULTIPLE SCLEROSIS
  3. BACLOFEN [Concomitant]
     Indication: MULTIPLE SCLEROSIS
  4. OXYCODONE [Concomitant]
     Indication: PAIN
  5. LITHIUM [Concomitant]
     Indication: BIPOLAR DISORDER
  6. SEROQUEL [Concomitant]
     Indication: SLEEP DISORDER

REACTIONS (3)
  - CARDIAC FAILURE CONGESTIVE [None]
  - HYPOTHYROIDISM [None]
  - INJECTION SITE REACTION [None]
